FAERS Safety Report 7203246-2 (Version None)
Quarter: 2010Q4

REPORT INFORMATION
  Report Type: 
  Country: None (occurrence: None)
  Receive Date: 20101230
  Receipt Date: 20101220
  Transmission Date: 20110411
  Serious: Yes (Hospitalization)
  Sender: FDA-Public Use
  Company Number: US-BIOGENIDEC-2010BI042920

PATIENT
  Age: 63 Year
  Sex: Male

DRUGS (2)
  1. TYSABRI [Suspect]
     Indication: MULTIPLE SCLEROSIS
     Route: 042
     Dates: start: 20100714
  2. TYSABRI [Suspect]
     Route: 042
     Dates: start: 20080103, end: 20080716

REACTIONS (2)
  - PARAESTHESIA [None]
  - URINARY TRACT INFECTION [None]
